FAERS Safety Report 10753847 (Version 5)
Quarter: 2015Q2

REPORT INFORMATION
  Report Type: Spontaneous
  Country: JP (occurrence: JP)
  Receive Date: 20150202
  Receipt Date: 20150521
  Transmission Date: 20150821
  Serious: Yes (Life-Threatening, Hospitalization)
  Sender: FDA-Public Use
  Company Number: JP-ROCHE-1529374

PATIENT
  Age: 79 Year
  Sex: Female
  Weight: 42 kg

DRUGS (6)
  1. AVASTIN [Suspect]
     Active Substance: BEVACIZUMAB
     Indication: COLON CANCER
     Dosage: ON 08/JAN/2015, THE MOST RECENT DOSE WAS ADMINISTERED.
     Route: 041
     Dates: start: 20141211, end: 20150108
  2. XELODA [Suspect]
     Active Substance: CAPECITABINE
     Indication: COLON CANCER
     Dosage: IT IS ADMINISTER/ONE WEEKLY HOLIDAY MEDICINE FOR TWO WEEKS.?ON 21/JAN/2015, THE MOST RECENT DOSE WAS
     Route: 048
     Dates: start: 20141106, end: 201412
  3. XELODA [Suspect]
     Active Substance: CAPECITABINE
     Indication: COLON CANCER RECURRENT
     Dosage: IT IS ADMINISTER/ONE WEEKLY HOLIDAY MEDICINE FOR TWO WEEKS.?ON 21/JAN/2015, THE MOST RECENT DOSE WAS
     Route: 048
     Dates: start: 20150108, end: 20150121
  4. XELODA [Suspect]
     Active Substance: CAPECITABINE
     Indication: COLON CANCER RECURRENT
     Dosage: IT IS ADMINISTER/ONE WEEKLY HOLIDAY MEDICINE FOR TWO WEEKS.?ON 21/JAN/2015, THE MOST RECENT DOSE WAS
     Route: 048
     Dates: start: 20141211, end: 201412
  5. ELPLAT [Suspect]
     Active Substance: OXALIPLATIN
     Indication: COLON CANCER
     Dosage: DOSAGE UNCERTAIN.
     Route: 041
     Dates: start: 20141211, end: 20150108
  6. NIVADIL [Concomitant]
     Active Substance: NILVADIPINE
     Dosage: DOSAGE IS UNCERTAIN.
     Route: 048

REACTIONS (3)
  - Abscess rupture [Recovering/Resolving]
  - Peritonitis [Recovering/Resolving]
  - Gastric perforation [Recovering/Resolving]

NARRATIVE: CASE EVENT DATE: 20150122
